FAERS Safety Report 5262618-6 (Version None)
Quarter: 2007Q1

REPORT INFORMATION
  Report Type: 
  Country: None (occurrence: None)
  Receive Date: 20070312
  Receipt Date: 20070228
  Transmission Date: 20070707
  Serious: Yes (Death, Hospitalization)
  Sender: FDA-Public Use
  Company Number: HQWYE885723MAY05

PATIENT
  Age: 75 Year
  Sex: Male

DRUGS (5)
  1. CORDARONE [Suspect]
     Indication: ATRIAL FIBRILLATION
     Route: 048
  2. CORDARONE [Suspect]
     Dosage: NOT SPECIFIED
     Route: 048
     Dates: end: 20030101
  3. CORDARONE [Suspect]
     Route: 048
     Dates: end: 20030401
  4. LISINOPRIL [Concomitant]
  5. SYNTHROID [Concomitant]

REACTIONS (24)
  - ACUTE RESPIRATORY DISTRESS SYNDROME [None]
  - ARTERIAL THROMBOSIS [None]
  - BRONCHOPNEUMONIA [None]
  - CEREBROVASCULAR ACCIDENT [None]
  - CRYPTOGENIC ORGANISING PNEUMONIA [None]
  - DEEP VEIN THROMBOSIS [None]
  - DIFFUSE ALVEOLAR DAMAGE [None]
  - DISSEMINATED INTRAVASCULAR COAGULATION [None]
  - DRUG TOXICITY [None]
  - HEPARIN-INDUCED THROMBOCYTOPENIA [None]
  - INTERSTITIAL LUNG DISEASE [None]
  - LOSS OF CONSCIOUSNESS [None]
  - PANCREATITIS ACUTE [None]
  - PERICARDIAL EFFUSION [None]
  - PERIPHERAL ISCHAEMIA [None]
  - PERIPHERAL VASCULAR DISORDER [None]
  - PLEURAL EFFUSION [None]
  - PNEUMOTHORAX [None]
  - PULMONARY OEDEMA [None]
  - RESPIRATORY DISTRESS [None]
  - RESPIRATORY FAILURE [None]
  - SKIN DISCOLOURATION [None]
  - SMALL INTESTINAL OBSTRUCTION [None]
  - VENOUS THROMBOSIS [None]
